FAERS Safety Report 10232788 (Version 1)
Quarter: 2014Q2

REPORT INFORMATION
  Report Type: Spontaneous
  Country: DE (occurrence: None)
  Receive Date: 20140610
  Receipt Date: 20140610
  Transmission Date: 20141212
  Serious: Yes (Other)
  Sender: FDA-Public Use
  Company Number: AUR-APL-2014-06221

PATIENT
  Age: 77 Year
  Sex: Female

DRUGS (7)
  1. AMLODIPINE (AMLODIPINE) [Suspect]
     Indication: PRODUCT USED FOR UNKNOWN INDICATION
     Route: 048
  2. REMERGIL [Suspect]
     Indication: PRODUCT USED FOR UNKNOWN INDICATION
     Route: 048
     Dates: start: 20131217, end: 20131218
  3. MADOPAR [Suspect]
     Indication: PRODUCT USED FOR UNKNOWN INDICATION
     Route: 048
     Dates: end: 20131219
  4. PANTEZOL [Suspect]
     Indication: PRODUCT USED FOR UNKNOWN INDICATION
     Route: 048
     Dates: end: 20140107
  5. TILIDIN (VALORON N/00628301 [Concomitant]
  6. NOVAMISULFON (METHMZOLE SODIUM [Concomitant]
  7. L-THYROXIN (LEVOTHYROXINE SODIUM) [Concomitant]

REACTIONS (1)
  - Hepatic enzyme increased [None]
